FAERS Safety Report 17310776 (Version 1)
Quarter: 2020Q1

REPORT INFORMATION
  Report Type: Spontaneous
  Country: US (occurrence: US)
  Receive Date: 20200123
  Receipt Date: 20200123
  Transmission Date: 20200409
  Serious: No
  Sender: FDA-Public Use
  Company Number: US-ROCHE-2254235

PATIENT
  Age: 48 Year
  Sex: Female
  Weight: 63.56 kg

DRUGS (3)
  1. RITUXAN [Suspect]
     Active Substance: RITUXIMAB
     Indication: RHEUMATOID ARTHRITIS
     Dosage: ONGOING STATUS UNKNOWN
     Route: 042
     Dates: start: 20190123
  2. RITUXAN [Suspect]
     Active Substance: RITUXIMAB
     Dosage: DISCONTINUED
     Route: 042
     Dates: start: 201305, end: 201305
  3. RITUXAN [Suspect]
     Active Substance: RITUXIMAB
     Indication: PROGRESSIVE MULTIPLE SCLEROSIS
     Dosage: SUBSEQUENT DOSES RECEIVED ON JUN/2018 AND 11/JAN/2019
     Route: 042
     Dates: start: 201210

REACTIONS (6)
  - Fall [Unknown]
  - Ligament sprain [Not Recovered/Not Resolved]
  - Drug ineffective [Unknown]
  - Tremor [Unknown]
  - Joint swelling [Not Recovered/Not Resolved]
  - Coordination abnormal [Recovered/Resolved]

NARRATIVE: CASE EVENT DATE: 201305
